FAERS Safety Report 9775955 (Version 1)
Quarter: 2013Q4

REPORT INFORMATION
  Report Type: Spontaneous
  Country: IT (occurrence: None)
  Receive Date: 20131219
  Receipt Date: 20131219
  Transmission Date: 20140711
  Serious: Yes (Other)
  Sender: FDA-Public Use
  Company Number: IT-ALSI-201300300

PATIENT
  Age: 59 Year
  Sex: Male

DRUGS (3)
  1. NITROUS OXIDE [Suspect]
     Indication: OCCUPATIONAL EXPOSURE TO PRODUCT
     Dosage: RESPIRATORY
     Dates: start: 1983, end: 2005
  2. NITROUS OXIDE [Suspect]
     Indication: PARKINSON^S DISEASE
     Dosage: RESPIRATORY
     Dates: start: 1983, end: 2005
  3. HALOTHANE [Suspect]
     Indication: OCCUPATIONAL EXPOSURE TO PRODUCT

REACTIONS (7)
  - Parkinson^s disease [None]
  - Occupational exposure to product [None]
  - Urine analysis abnormal [None]
  - Joint injury [None]
  - Sciatica [None]
  - Disease recurrence [None]
  - Spondylolisthesis [None]
